FAERS Safety Report 6719947-6 (Version None)
Quarter: 2010Q2

REPORT INFORMATION
  Report Type: 
  Country: None (occurrence: None)
  Receive Date: 20100511
  Receipt Date: 20100505
  Transmission Date: 20101027
  Serious: Yes (Death, Other)
  Sender: FDA-Public Use
  Company Number: TR-ELI_LILLY_AND_COMPANY-TR201005000831

PATIENT
  Sex: Male

DRUGS (5)
  1. HUMULIN R [Suspect]
     Indication: DIABETES MELLITUS
     Dosage: 6 IU, EACH MORNING
     Route: 058
     Dates: start: 20100220, end: 20100425
  2. HUMULIN R [Suspect]
     Dosage: 6 IU, OTHER
     Route: 058
     Dates: start: 20100220, end: 20100425
  3. HUMULIN R [Suspect]
     Dosage: 6 IU, EACH EVENING
     Route: 058
     Dates: start: 20100220, end: 20100425
  4. HUMULIN N [Suspect]
     Indication: DIABETES MELLITUS
     Dosage: 8 U, DAILY (1/D)
     Route: 058
     Dates: start: 20100220, end: 20100425
  5. CHEMOTHERAPEUTICS NOS [Concomitant]
     Indication: CHEMOTHERAPY
     Dosage: UNK, 2/D
     Dates: start: 20100201, end: 20100422

REACTIONS (1)
  - PANCREATIC CARCINOMA [None]
